FAERS Safety Report 7488789-9 (Version None)
Quarter: 2011Q2

REPORT INFORMATION
  Report Type: 
  Country: None (occurrence: None)
  Receive Date: 20110518
  Receipt Date: 20110513
  Transmission Date: 20111010
  Serious: Yes (Disabling)
  Sender: FDA-Public Use
  Company Number: CY-ASTRAZENECA-2011SE28789

PATIENT
  Sex: Female
  Weight: 65 kg

DRUGS (1)
  1. NEXIUM [Suspect]
     Indication: OESOPHAGITIS
     Route: 048
     Dates: start: 20110508, end: 20110513

REACTIONS (1)
  - SALMONELLOSIS [None]
